FAERS Safety Report 5084826-X (Version None)
Quarter: 2006Q3

REPORT INFORMATION
  Report Type: 
  Country: None (occurrence: None)
  Receive Date: 20060815
  Receipt Date: 20060803
  Transmission Date: 20061208
  Serious: Yes (Other)
  Sender: FDA-Public Use
  Company Number: CAWYE184114JUL06

PATIENT
  Age: 37 Year
  Sex: Female

DRUGS (4)
  1. EFFEXOR XR [Suspect]
     Indication: GENERALISED ANXIETY DISORDER
     Dosage: 37.5 MG 1X PER 1 DAY ORAL; SEE IMAGE
     Route: 048
     Dates: start: 20050401, end: 20060101
  2. EFFEXOR XR [Suspect]
     Indication: PANIC ATTACK
     Dosage: 37.5 MG 1X PER 1 DAY ORAL; SEE IMAGE
     Route: 048
     Dates: start: 20050401, end: 20060101
  3. EFFEXOR XR [Suspect]
     Indication: GENERALISED ANXIETY DISORDER
     Dosage: 37.5 MG 1X PER 1 DAY ORAL; SEE IMAGE
     Route: 048
     Dates: start: 20060101, end: 20060707
  4. EFFEXOR XR [Suspect]
     Indication: PANIC ATTACK
     Dosage: 37.5 MG 1X PER 1 DAY ORAL; SEE IMAGE
     Route: 048
     Dates: start: 20060101, end: 20060707

REACTIONS (9)
  - CONSTIPATION [None]
  - DRUG WITHDRAWAL SYNDROME [None]
  - MENSTRUAL DISORDER [None]
  - METRORRHAGIA [None]
  - NAUSEA [None]
  - PARAESTHESIA [None]
  - TREMOR [None]
  - VERTIGO [None]
  - VOMITING [None]
